FAERS Safety Report 13227103 (Version 1)
Quarter: 2017Q1

REPORT INFORMATION
  Report Type: Spontaneous
  Country: US (occurrence: US)
  Receive Date: 20170213
  Receipt Date: 20170213
  Transmission Date: 20170428
  Serious: No
  Sender: FDA-Public Use
  Company Number: US-IGSA-GTI004669

PATIENT
  Age: 52 Year
  Sex: Female
  Weight: 89 kg

DRUGS (30)
  1. IPRATROPIUM [Concomitant]
     Active Substance: IPRATROPIUM
  2. LEVAQUIN [Concomitant]
     Active Substance: LEVOFLOXACIN
  3. CELEBREX [Concomitant]
     Active Substance: CELECOXIB
  4. PULMICORT TURBUHALER [Concomitant]
     Active Substance: BUDESONIDE
  5. MONTELUKAST [Concomitant]
     Active Substance: MONTELUKAST SODIUM
  6. ALPRAZOLAM. [Concomitant]
     Active Substance: ALPRAZOLAM
  7. FLEXERIL [Concomitant]
     Active Substance: CYCLOBENZAPRINE HYDROCHLORIDE
  8. PANTOPRAZOLE [Concomitant]
     Active Substance: PANTOPRAZOLE SODIUM
  9. OXYCODONE [Concomitant]
     Active Substance: OXYCODONE
  10. PROLASTIN-C [Suspect]
     Active Substance: .ALPHA.1-PROTEINASE INHIBITOR HUMAN
     Indication: ALPHA-1 ANTI-TRYPSIN DEFICIENCY
     Route: 042
     Dates: start: 20160929
  11. VITAMIN C [Concomitant]
     Active Substance: ASCORBIC ACID
  12. DALIRESP [Concomitant]
     Active Substance: ROFLUMILAST
  13. PREDNISONE. [Concomitant]
     Active Substance: PREDNISONE
  14. PROLASTIN-C [Suspect]
     Active Substance: .ALPHA.1-PROTEINASE INHIBITOR HUMAN
     Indication: ALPHA-1 ANTI-TRYPSIN DEFICIENCY
     Route: 042
     Dates: start: 201212
  15. DULOXETINE. [Concomitant]
     Active Substance: DULOXETINE
  16. VENTOLIN HFA [Concomitant]
     Active Substance: ALBUTEROL SULFATE
  17. ALBUTEROL /00139501/ [Concomitant]
     Active Substance: ALBUTEROL
  18. LISINOPRIL. [Concomitant]
     Active Substance: LISINOPRIL
  19. OXYBUTYNIN [Concomitant]
     Active Substance: OXYBUTYNIN
  20. BENAZEPRIL [Concomitant]
     Active Substance: BENAZEPRIL HYDROCHLORIDE
  21. FLONASE [Concomitant]
     Active Substance: FLUTICASONE PROPIONATE
     Route: 045
  22. VERAMYST [Concomitant]
     Active Substance: FLUTICASONE FUROATE
  23. ROBITUSSIN DM COUGH CONTROL [Concomitant]
  24. BROVANA [Concomitant]
     Active Substance: ARFORMOTEROL TARTRATE
  25. MUPIROCIN. [Concomitant]
     Active Substance: MUPIROCIN
  26. GABAPENTIN. [Concomitant]
     Active Substance: GABAPENTIN
  27. PROMETHAZINE [Concomitant]
     Active Substance: PROMETHAZINE\PROMETHAZINE HYDROCHLORIDE
  28. CYCLOBENZAPRINE [Concomitant]
     Active Substance: CYCLOBENZAPRINE
  29. ZOFRAN [Concomitant]
     Active Substance: ONDANSETRON HYDROCHLORIDE
  30. MAXALT [Concomitant]
     Active Substance: RIZATRIPTAN BENZOATE

REACTIONS (1)
  - Fatigue [Recovering/Resolving]

NARRATIVE: CASE EVENT DATE: 20160929
